FAERS Safety Report 6830622-X (Version None)
Quarter: 2010Q3

REPORT INFORMATION
  Report Type: 
  Country: None (occurrence: None)
  Receive Date: 20100709
  Receipt Date: 20100709
  Transmission Date: 20110219
  Serious: Yes (Other)
  Sender: FDA-Public Use
  Company Number: None

PATIENT
  Sex: Female
  Weight: 90.7194 kg

DRUGS (2)
  1. EURAX [Suspect]
     Indication: ACARODERMATITIS
     Dosage: COVER BODY FIRST DAY SECOND DAY
     Dates: start: 20100425
  2. EURAX [Suspect]
     Indication: ACARODERMATITIS
     Dosage: COVER BODY FIRST DAY SECOND DAY
     Dates: start: 20100426

REACTIONS (7)
  - ACARODERMATITIS [None]
  - DISEASE RECURRENCE [None]
  - DRUG INEFFECTIVE [None]
  - FEELING ABNORMAL [None]
  - PAIN [None]
  - PRODUCT LABEL CONFUSION [None]
  - RASH ERYTHEMATOUS [None]
